FAERS Safety Report 24613300 (Version 1)
Quarter: 2024Q4

REPORT INFORMATION
  Report Type: Other
  Country: XG (occurrence: XG)
  Receive Date: 20241113
  Receipt Date: 20241113
  Transmission Date: 20250115
  Serious: Yes (Hospitalization, Other)
  Sender: B BRAUN
  Company Number: XG-B.Braun Medical Inc.-2164952

PATIENT
  Age: 60 Year
  Sex: Male

DRUGS (7)
  1. CEFTRIAXONE SODIUM [Suspect]
     Active Substance: CEFTRIAXONE SODIUM
     Indication: Prophylaxis
  2. ESOMEPRAZOLE. [Concomitant]
     Active Substance: ESOMEPRAZOLE MAGNESIUM
  3. ENOXAPARIN [Concomitant]
     Active Substance: ENOXAPARIN
  4. UNSPECIFIED INGREDIENT [Concomitant]
     Active Substance: UNSPECIFIED INGREDIENT
  5. FUROSEMIDE [Concomitant]
     Active Substance: FUROSEMIDE
  6. AMLODIPINE [Concomitant]
     Active Substance: AMLODIPINE BESYLATE
  7. BISOPROLOL FUMARATE [Concomitant]
     Active Substance: BISOPROLOL FUMARATE

REACTIONS (2)
  - Drug hypersensitivity [Recovered/Resolved]
  - Atrial fibrillation [Recovered/Resolved]
